FAERS Safety Report 18587686 (Version 1)
Quarter: 2020Q4

REPORT INFORMATION
  Report Type: Spontaneous
  Country: US (occurrence: US)
  Receive Date: 20201207
  Receipt Date: 20201207
  Transmission Date: 20210114
  Serious: No
  Sender: FDA-Public Use
  Company Number: US-NOVOPROD-718238

PATIENT
  Sex: Female

DRUGS (3)
  1. GRAPE SEED EXTRACT [Suspect]
     Active Substance: DIETARY SUPPLEMENT\GRAPE SEED EXTRACT
     Indication: BLOOD OESTROGEN INCREASED
     Dosage: UNK
     Route: 065
  2. NOVOLIN 70/30 [Suspect]
     Active Substance: INSULIN HUMAN
     Dosage: UNK
     Route: 058
     Dates: start: 2018
  3. NOVOLIN 70/30 [Suspect]
     Active Substance: INSULIN HUMAN
     Indication: PRODUCT USED FOR UNKNOWN INDICATION
     Dosage: UNK
     Route: 058
     Dates: start: 2018

REACTIONS (4)
  - Hunger [Unknown]
  - Cognitive disorder [Unknown]
  - Product storage error [Unknown]
  - Vision blurred [Unknown]
